FAERS Safety Report 8523637-7 (Version None)
Quarter: 2012Q3

REPORT INFORMATION
  Report Type: 
  Country: None (occurrence: None)
  Receive Date: 20120720
  Receipt Date: 20120717
  Transmission Date: 20120928
  Serious: Yes (Other)
  Sender: FDA-Public Use
  Company Number: JP-BAYER-2012-069570

PATIENT
  Age: 77 Year
  Sex: Female

DRUGS (2)
  1. ASPIRIN [Suspect]
     Route: 048
  2. CLOPIDOGREL BISULFATE [Suspect]
     Dosage: UNK
     Route: 048

REACTIONS (2)
  - MELAENA [None]
  - LIPOMA [None]
